FAERS Safety Report 8425936-6 (Version None)
Quarter: 2012Q2

REPORT INFORMATION
  Report Type: 
  Country: None (occurrence: None)
  Receive Date: 20120611
  Receipt Date: 20120604
  Transmission Date: 20120825
  Serious: Yes (Hospitalization)
  Sender: FDA-Public Use
  Company Number: US-BAYER-2012-020023

PATIENT
  Age: 18 Year
  Sex: Female
  Weight: 73 kg

DRUGS (2)
  1. YAZ [Suspect]
     Indication: CONTRACEPTION
     Dosage: UNK
     Dates: start: 20071107, end: 20100415
  2. AMOXICILLIN [Concomitant]
     Dosage: 500 MG, UNK

REACTIONS (5)
  - PAIN [None]
  - INJURY [None]
  - GALLBLADDER POLYP [None]
  - CHOLECYSTITIS CHRONIC [None]
  - BILIARY COLIC [None]
